FAERS Safety Report 5420451-6 (Version None)
Quarter: 2007Q3

REPORT INFORMATION
  Report Type: 
  Country: None (occurrence: None)
  Receive Date: 20070817
  Receipt Date: 20070817
  Transmission Date: 20080115
  Serious: No
  Sender: FDA-Public Use
  Company Number: None

PATIENT
  Sex: Female
  Weight: 63.5036 kg

DRUGS (1)
  1. SOLU-MEDROL [Suspect]
     Indication: MYASTHENIA GRAVIS
     Dosage: 1000 MG X 1 IV
     Route: 042
     Dates: start: 20070816

REACTIONS (5)
  - ERYTHEMA [None]
  - EYELIDS PRURITUS [None]
  - PRURITUS [None]
  - THROAT IRRITATION [None]
  - TONGUE DISORDER [None]
